FAERS Safety Report 5018759-1 (Version None)
Quarter: 2006Q2

REPORT INFORMATION
  Report Type: 
  Country: None (occurrence: None)
  Receive Date: 20060526
  Receipt Date: 20060517
  Transmission Date: 20061013
  Serious: Yes (Other)
  Sender: FDA-Public Use
  Company Number: 200612094BCC

PATIENT
  Age: 65 Year
  Sex: Female

DRUGS (5)
  1. ALEVE (CAPLET) [Suspect]
     Indication: ARTHRALGIA
     Dosage: 880 MG, TOTAL DAILY, ORAL
     Route: 048
     Dates: start: 20060517
  2. ASPIRIN [Concomitant]
  3. ACCUPRIL [Concomitant]
  4. LIPITOR [Concomitant]
  5. INSULIN [Concomitant]

REACTIONS (1)
  - CHEST PAIN [None]
